FAERS Safety Report 8326969 (Version 2)
Quarter: 2013Q1

REPORT INFORMATION
  Report Type: Report from Study
  Country: US (occurrence: US)
  Receive Date: 20120109
  Receipt Date: 20130122
  Transmission Date: 20140127
  Serious: Yes (Hospitalization)
  Sender: FDA-Public Use
  Company Number: US-UCBSA-048519

PATIENT
  Age: 53 Year
  Sex: Female
  Weight: 65 kg

DRUGS (20)
  1. CERTOLIZUMAB PEGOL [Suspect]
     Indication: RHEUMATOID ARTHRITIS
     Dosage: NUMBER OF DOSES RECEIVED: 16
     Route: 058
     Dates: start: 20110707
  2. METHOTREXATE [Concomitant]
     Indication: RHEUMATOID ARTHRITIS
     Dates: start: 20091104
  3. NORCO [Concomitant]
     Indication: TOOTHACHE
     Dosage: 10/325 MG
     Dates: start: 20110927
  4. NORCO [Concomitant]
     Indication: RHEUMATOID ARTHRITIS
     Dosage: 10/325 MG
     Dates: start: 20110927
  5. NORCO [Concomitant]
     Indication: TOOTHACHE
     Dosage: 10/325 MG
     Dates: start: 20110903, end: 20110926
  6. NORCO [Concomitant]
     Indication: RHEUMATOID ARTHRITIS
     Dosage: 10/325 MG
     Dates: start: 20110903, end: 20110926
  7. NORCO [Concomitant]
     Indication: TOOTHACHE
     Dosage: 10/325 MG
     Dates: start: 20100617, end: 20110902
  8. NORCO [Concomitant]
     Indication: RHEUMATOID ARTHRITIS
     Dosage: 10/325 MG
     Dates: start: 20100617, end: 20110902
  9. PLAQUENIL SULPHATE [Concomitant]
     Indication: RHEUMATOID ARTHRITIS
     Dates: start: 20090727
  10. FOLIC ACID [Concomitant]
     Indication: SUPPLEMENTATION THERAPY
     Dates: start: 20100917
  11. ALPRAZOLAM [Concomitant]
     Indication: ANXIETY
     Dates: start: 20100525
  12. CALTRATE WITH VITAMIN D [Concomitant]
     Indication: MEDICAL DIET
     Dates: start: 200912
  13. ENABLEX [Concomitant]
     Indication: HYPERTONIC BLADDER
     Dates: start: 20110717
  14. ENABLEX [Concomitant]
     Indication: HYPERTONIC BLADDER
     Dates: start: 20101105, end: 20110623
  15. NORVASC [Concomitant]
     Indication: ANXIETY
     Dates: start: 20090727
  16. CYMBALTA [Concomitant]
     Indication: DEPRESSION
     Dates: start: 20101105
  17. TRAMADOL [Concomitant]
     Indication: BACK PAIN
     Dates: start: 20100903
  18. DULCOLAX [Concomitant]
     Indication: CONSTIPATION
     Dates: start: 201103
  19. FLONASE [Concomitant]
     Indication: HYPERSENSITIVITY
     Dates: start: 20110624
  20. NEXIUM [Concomitant]
     Indication: CHEST DISCOMFORT
     Dates: start: 20110805

REACTIONS (3)
  - Chest pain [Recovered/Resolved]
  - Hypoaesthesia [Recovered/Resolved]
  - Helicobacter infection [Not Recovered/Not Resolved]
